FAERS Safety Report 9262933 (Version 1)
Quarter: 2013Q2

REPORT INFORMATION
  Report Type: Spontaneous
  Country: FI (occurrence: None)
  Receive Date: 20130425
  Receipt Date: 20130425
  Transmission Date: 20140414
  Serious: Yes (Other)
  Sender: FDA-Public Use
  Company Number: FI-20130004

PATIENT
  Age: 53 Year
  Sex: Female

DRUGS (1)
  1. DOTAREM [Suspect]
     Indication: NUCLEAR MAGNETIC RESONANCE IMAGING BRAIN
     Dosage: 15 MG (15 ML, 1 IN 1 D)
     Route: 042
     Dates: start: 20130115, end: 20130115

REACTIONS (4)
  - Malaise [None]
  - Throat tightness [None]
  - Blood pressure increased [None]
  - Oropharyngeal discomfort [None]
